FAERS Safety Report 9376672 (Version 1)
Quarter: 2013Q3

REPORT INFORMATION
  Report Type: Spontaneous
  Country: JP (occurrence: JP)
  Receive Date: 20130701
  Receipt Date: 20130701
  Transmission Date: 20140515
  Serious: Yes (Other)
  Sender: FDA-Public Use
  Company Number: JP-009507513-1306JPN010944

PATIENT
  Sex: 0

DRUGS (3)
  1. GASTER [Suspect]
     Indication: PRODUCT USED FOR UNKNOWN INDICATION
     Dosage: 20 MG, UNKNOWN/D (FORMULATION UNKNOWN)
     Route: 048
  2. GASTER [Suspect]
     Indication: PRODUCT USED FOR UNKNOWN INDICATION
     Dosage: 20 MG, UID/QD
     Route: 041
  3. ANTIMICROBIAL (UNSPECIFIED) [Suspect]
     Indication: PRODUCT USED FOR UNKNOWN INDICATION
     Dosage: DAILY DOSUS UNKNOWN

REACTIONS (2)
  - Platelet count decreased [Unknown]
  - Pancreatitis acute [Unknown]
